FAERS Safety Report 4583990-6 (Version None)
Quarter: 2005Q1

REPORT INFORMATION
  Report Type: 
  Country: None (occurrence: None)
  Receive Date: 20050216
  Receipt Date: 20041105
  Transmission Date: 20050727
  Serious: Yes (Life-Threatening, Hospitalization, Other)
  Sender: FDA-Public Use
  Company Number: US-MERCK-0411USA00976

PATIENT
  Age: 69 Year
  Sex: Female
  Weight: 89 kg

DRUGS (17)
  1. ZOCOR [Suspect]
     Indication: BLOOD CHOLESTEROL INCREASED
     Route: 048
     Dates: start: 20040601, end: 20040101
  2. ZOCOR [Suspect]
     Route: 048
     Dates: start: 20011231, end: 20020301
  3. ZOCOR [Suspect]
     Route: 048
     Dates: start: 20020301
  4. ZOCOR [Suspect]
     Route: 048
     Dates: end: 20040601
  5. ZOCOR [Suspect]
     Route: 048
     Dates: start: 20040101, end: 20041201
  6. ZOCOR [Suspect]
     Indication: LIPIDS INCREASED
     Route: 048
     Dates: start: 20040601, end: 20040101
  7. ZOCOR [Suspect]
     Route: 048
     Dates: start: 20011231, end: 20020301
  8. ZOCOR [Suspect]
     Route: 048
     Dates: start: 20020301
  9. ZOCOR [Suspect]
     Route: 048
     Dates: end: 20040601
  10. ZOCOR [Suspect]
     Route: 048
     Dates: start: 20040101, end: 20041201
  11. AVANDIA [Concomitant]
     Route: 048
     Dates: end: 20021201
  12. AVANDIA [Concomitant]
     Route: 048
     Dates: end: 20021201
  13. AVANDIA [Concomitant]
     Route: 065
     Dates: end: 20020101
  14. GLYBURIDE [Concomitant]
     Route: 065
     Dates: start: 20020101
  15. HYDRODIURIL [Concomitant]
     Route: 048
  16. NOLVADEX [Suspect]
     Indication: BREAST CANCER
     Route: 065
     Dates: start: 20020101
  17. CLONIDINE [Concomitant]
     Route: 065

REACTIONS (55)
  - ACUTE CORONARY SYNDROME [None]
  - ACUTE MYOCARDIAL INFARCTION [None]
  - ALANINE AMINOTRANSFERASE INCREASED [None]
  - ANAEMIA [None]
  - ANGINA UNSTABLE [None]
  - ASPARTATE AMINOTRANSFERASE INCREASED [None]
  - BACK PAIN [None]
  - BLOOD CHOLESTEROL INCREASED [None]
  - BLOOD CREATININE INCREASED [None]
  - BLOOD PRESSURE INADEQUATELY CONTROLLED [None]
  - BLOOD UREA INCREASED [None]
  - BRONCHITIS [None]
  - BRONCHITIS ACUTE [None]
  - BUNDLE BRANCH BLOCK LEFT [None]
  - CALCINOSIS [None]
  - CARDIAC FAILURE CONGESTIVE [None]
  - CAROTID ARTERY DISEASE [None]
  - CATARACT [None]
  - CERUMEN IMPACTION [None]
  - CHEST DISCOMFORT [None]
  - CHEST INJURY [None]
  - CHEST WALL PAIN [None]
  - CORONARY ARTERY DISEASE [None]
  - CORONARY ARTERY STENOSIS [None]
  - CORONARY ARTERY THROMBOSIS [None]
  - DIABETIC EYE DISEASE [None]
  - DIABETIC NEUROPATHY [None]
  - DIABETIC RETINOPATHY [None]
  - FALL [None]
  - GASTRITIS [None]
  - GASTROENTERITIS [None]
  - HAEMATURIA [None]
  - HEADACHE [None]
  - HEPATIC STEATOSIS [None]
  - HYPERTENSIVE NEPHROPATHY [None]
  - LIMB INJURY [None]
  - LOSS OF CONSCIOUSNESS [None]
  - MIGRAINE [None]
  - MIGRAINE WITH AURA [None]
  - MUSCLE SPASMS [None]
  - MYOCARDIAL INFARCTION [None]
  - OEDEMA PERIPHERAL [None]
  - PNEUMONIA [None]
  - PYREXIA [None]
  - PYURIA [None]
  - RASH [None]
  - RENAL FAILURE CHRONIC [None]
  - SYNCOPE [None]
  - TENDONITIS [None]
  - TOOTH LOSS [None]
  - URINARY TRACT INFECTION [None]
  - VITREOUS DETACHMENT [None]
  - VITREOUS DISORDER [None]
  - WEIGHT INCREASED [None]
  - WHEEZING [None]
